FAERS Safety Report 19948527 (Version 3)
Quarter: 2021Q4

REPORT INFORMATION
  Report Type: Spontaneous
  Country: KR (occurrence: KR)
  Receive Date: 20211013
  Receipt Date: 20211110
  Transmission Date: 20220304
  Serious: Yes (Hospitalization, Other)
  Sender: FDA-Public Use
  Company Number: KR-ASTELLAS-2021US038181

PATIENT
  Age: 80 Year
  Sex: Female

DRUGS (1)
  1. MIRABEGRON [Suspect]
     Active Substance: MIRABEGRON
     Indication: Nocturia
     Dosage: 50 MG, ONCE DAILY (IN EVENING)
     Route: 048
     Dates: start: 20211001, end: 20211005

REACTIONS (5)
  - Haemorrhage urinary tract [Recovered/Resolved]
  - Uterine haemorrhage [Recovered/Resolved]
  - Blood urine present [Recovered/Resolved]
  - Chromaturia [Recovered/Resolved]
  - Asthenia [Recovered/Resolved]

NARRATIVE: CASE EVENT DATE: 20211005
